FAERS Safety Report 23170711 (Version 1)
Quarter: 2023Q4

REPORT INFORMATION
  Report Type: Spontaneous
  Country: US (occurrence: US)
  Receive Date: 20231110
  Receipt Date: 20231110
  Transmission Date: 20240110
  Serious: Yes (Other)
  Sender: FDA-Public Use
  Company Number: US-BAYER-2023A157592

PATIENT
  Sex: Female

DRUGS (1)
  1. SKYLA [Suspect]
     Active Substance: LEVONORGESTREL
     Dosage: 14?G/DAY
     Route: 015
     Dates: start: 20230406, end: 20231027

REACTIONS (3)
  - Abdominal pain lower [None]
  - Genital haemorrhage [None]
  - Embedded device [None]

NARRATIVE: CASE EVENT DATE: 20230101
